FAERS Safety Report 8807322 (Version 1)
Quarter: 2012Q4

REPORT INFORMATION
  Report Type: 
  Country: PH (occurrence: PH)
  Receive Date: 20120925
  Receipt Date: 20120925
  Transmission Date: 20130627
  Serious: Yes (Death, Hospitalization)
  Sender: FDA-Public Use
  Company Number: PH-ROCHE-763054

PATIENT
  Age: 67 Year
  Sex: Male

DRUGS (9)
  1. RECORMON [Suspect]
     Indication: NEPHROGENIC ANAEMIA
     Route: 058
     Dates: start: 20100302, end: 20101123
  2. MIRCERA [Suspect]
     Indication: NEPHROGENIC ANAEMIA
     Route: 058
     Dates: start: 20101123
  3. EPOETIN ALFA [Suspect]
     Indication: PRODUCT USED FOR UNKNOWN INDICATION
     Route: 058
  4. DILTIAZEM [Concomitant]
  5. AMLODIPINE [Concomitant]
  6. FOLIC ACID [Concomitant]
  7. CYCLOPHOSPHAMIDE [Concomitant]
  8. KETOSTERIL [Concomitant]
  9. LANTUS [Concomitant]

REACTIONS (2)
  - Sepsis [Fatal]
  - Bone marrow failure [Not Recovered/Not Resolved]
